FAERS Safety Report 23693220 (Version 5)
Quarter: 2025Q1

REPORT INFORMATION
  Report Type: Spontaneous
  Country: CA (occurrence: CA)
  Receive Date: 20240401
  Receipt Date: 20250205
  Transmission Date: 20250408
  Serious: Yes (Life-Threatening, Hospitalization, Other)
  Sender: SANDOZ
  Company Number: CA-002147023-NVSC2023CA107899

PATIENT
  Age: 3 Decade
  Sex: Male

DRUGS (57)
  1. ACETAMINOPHEN [Suspect]
     Active Substance: ACETAMINOPHEN
     Indication: Neuralgia
     Dosage: 2600 MG, QD
     Route: 065
  2. ACETAMINOPHEN [Suspect]
     Active Substance: ACETAMINOPHEN
     Indication: Guillain-Barre syndrome
     Dosage: 3900 MG, QD
     Route: 065
  3. ACETAMINOPHEN [Suspect]
     Active Substance: ACETAMINOPHEN
     Indication: Pain
     Route: 065
  4. ACETAMINOPHEN [Suspect]
     Active Substance: ACETAMINOPHEN
     Route: 065
  5. DICLOFENAC [Suspect]
     Active Substance: DICLOFENAC
     Indication: Guillain-Barre syndrome
     Route: 065
  6. DICLOFENAC [Suspect]
     Active Substance: DICLOFENAC
     Indication: Neuralgia
  7. DICLOFENAC [Suspect]
     Active Substance: DICLOFENAC
     Indication: Pain
  8. DILAUDID [Suspect]
     Active Substance: HYDROMORPHONE HYDROCHLORIDE
     Indication: Guillain-Barre syndrome
     Dosage: 30 MG, QD
     Route: 065
  9. DILAUDID [Suspect]
     Active Substance: HYDROMORPHONE HYDROCHLORIDE
     Indication: Neuralgia
     Dosage: 7 MG, QD
     Route: 065
  10. DILAUDID [Suspect]
     Active Substance: HYDROMORPHONE HYDROCHLORIDE
     Indication: Pain
  11. FENTANYL [Suspect]
     Active Substance: FENTANYL
     Indication: Guillain-Barre syndrome
     Dosage: 25 UG, QH (ON DAY 34)
     Route: 065
  12. FENTANYL [Suspect]
     Active Substance: FENTANYL
     Indication: Neuralgia
     Dosage: 37.5 MG, QH
     Route: 065
  13. FENTANYL [Suspect]
     Active Substance: FENTANYL
     Indication: Pain
     Route: 062
  14. FENTANYL [Suspect]
     Active Substance: FENTANYL
     Route: 062
  15. GABAPENTIN [Suspect]
     Active Substance: GABAPENTIN
     Route: 065
  16. GABAPENTIN [Suspect]
     Active Substance: GABAPENTIN
     Route: 065
  17. GABAPENTIN [Suspect]
     Active Substance: GABAPENTIN
     Indication: Acute respiratory failure
     Route: 065
  18. GABAPENTIN [Suspect]
     Active Substance: GABAPENTIN
     Indication: Neuralgia
     Dosage: 3600 MG, QD
     Route: 065
  19. GABAPENTIN [Suspect]
     Active Substance: GABAPENTIN
     Route: 065
  20. GABAPENTIN [Suspect]
     Active Substance: GABAPENTIN
     Indication: Guillain-Barre syndrome
     Dosage: 900 MG, QD
     Route: 065
  21. GABAPENTIN [Suspect]
     Active Substance: GABAPENTIN
     Route: 065
  22. GABAPENTIN [Suspect]
     Active Substance: GABAPENTIN
     Route: 065
  23. GABAPENTIN [Suspect]
     Active Substance: GABAPENTIN
     Route: 065
  24. GABAPENTIN [Suspect]
     Active Substance: GABAPENTIN
     Route: 065
  25. GABAPENTIN [Suspect]
     Active Substance: GABAPENTIN
     Route: 065
  26. HYDROMORPHONE [Suspect]
     Active Substance: HYDROMORPHONE
     Route: 042
  27. HYDROMORPHONE [Suspect]
     Active Substance: HYDROMORPHONE
     Indication: Guillain-Barre syndrome
     Route: 042
  28. HYDROMORPHONE [Suspect]
     Active Substance: HYDROMORPHONE
     Route: 048
  29. HYDROMORPHONE [Suspect]
     Active Substance: HYDROMORPHONE
     Indication: Neuralgia
     Route: 065
  30. HYDROMORPHONE [Suspect]
     Active Substance: HYDROMORPHONE
     Route: 065
  31. HYDROMORPHONE [Suspect]
     Active Substance: HYDROMORPHONE
     Route: 065
  32. IBUPROFEN [Suspect]
     Active Substance: IBUPROFEN
     Indication: Guillain-Barre syndrome
     Dosage: 1600 MG, QD
     Route: 065
  33. IBUPROFEN [Suspect]
     Active Substance: IBUPROFEN
     Indication: Acute respiratory failure
  34. IBUPROFEN [Suspect]
     Active Substance: IBUPROFEN
     Indication: Neuralgia
  35. HUMAN IMMUNOGLOBULIN G [Suspect]
     Active Substance: HUMAN IMMUNOGLOBULIN G
     Indication: Guillain-Barre syndrome
     Route: 042
  36. KETAMINE [Suspect]
     Active Substance: KETAMINE
     Route: 065
  37. KETAMINE [Suspect]
     Active Substance: KETAMINE
     Indication: Guillain-Barre syndrome
     Dosage: 40 MG, QD (ON DAY 29) VIA NASOGASTRIC TUBE
     Route: 065
  38. KETAMINE [Suspect]
     Active Substance: KETAMINE
     Indication: Neuralgia
     Route: 065
  39. KETAMINE [Suspect]
     Active Substance: KETAMINE
     Route: 042
  40. KETAMINE [Suspect]
     Active Substance: KETAMINE
     Route: 048
  41. LIDOCAINE [Suspect]
     Active Substance: LIDOCAINE
     Indication: Guillain-Barre syndrome
     Dosage: 3.84 MG, QH
     Route: 061
  42. LIDOCAINE [Suspect]
     Active Substance: LIDOCAINE
     Indication: Neuralgia
     Route: 065
  43. LIDOCAINE [Suspect]
     Active Substance: LIDOCAINE
     Indication: Pain
  44. NABILONE [Suspect]
     Active Substance: NABILONE
     Indication: Guillain-Barre syndrome
     Dosage: 2 MG, QD (ON DAY 34)
     Route: 065
  45. NABILONE [Suspect]
     Active Substance: NABILONE
     Indication: Neuralgia
     Dosage: 6 MG, QD
     Route: 065
  46. NABILONE [Suspect]
     Active Substance: NABILONE
     Indication: Pain
     Route: 065
  47. OLANZAPINE [Suspect]
     Active Substance: OLANZAPINE
     Indication: Neuralgia
     Dosage: 2.5 MG, QD
     Route: 065
  48. OLANZAPINE [Suspect]
     Active Substance: OLANZAPINE
     Indication: Guillain-Barre syndrome
     Dosage: 3 MG, QD (ON DAY 31)
     Route: 065
  49. OLANZAPINE [Suspect]
     Active Substance: OLANZAPINE
     Indication: Pain
     Route: 065
  50. OLANZAPINE [Suspect]
     Active Substance: OLANZAPINE
     Route: 065
  51. PHENYTOIN [Suspect]
     Active Substance: PHENYTOIN
     Indication: Neuralgia
     Route: 065
  52. PHENYTOIN [Suspect]
     Active Substance: PHENYTOIN
     Route: 065
  53. VENLAFAXINE [Suspect]
     Active Substance: VENLAFAXINE HYDROCHLORIDE
     Indication: Guillain-Barre syndrome
     Route: 065
  54. VENLAFAXINE [Suspect]
     Active Substance: VENLAFAXINE HYDROCHLORIDE
     Indication: Neuralgia
     Route: 065
  55. VOLTAREN [Suspect]
     Active Substance: DICLOFENAC SODIUM
     Indication: Product used for unknown indication
     Route: 065
  56. ZOPICLONE [Suspect]
     Active Substance: ZOPICLONE
     Indication: Guillain-Barre syndrome
     Route: 065
  57. ZOPICLONE [Suspect]
     Active Substance: ZOPICLONE
     Indication: Neuralgia
     Route: 065

REACTIONS (5)
  - Inspiratory capacity decreased [Unknown]
  - Therapy non-responder [Unknown]
  - Drug ineffective for unapproved indication [Unknown]
  - Drug ineffective [Unknown]
  - Off label use [Unknown]
